FAERS Safety Report 13762933 (Version 1)
Quarter: 2017Q3

REPORT INFORMATION
  Report Type: Spontaneous
  Country: FR (occurrence: FR)
  Receive Date: 20170718
  Receipt Date: 20170718
  Transmission Date: 20171127
  Serious: Yes (Hospitalization)
  Sender: FDA-Public Use
  Company Number: FR-009507513-1707FRA002605

PATIENT
  Age: 61 Year
  Sex: Male

DRUGS (7)
  1. METHYLPREDNISOLONE. [Suspect]
     Active Substance: METHYLPREDNISOLONE
     Indication: PREMEDICATION
     Dosage: 120 MG, CYCLICAL
     Route: 042
     Dates: start: 20170613, end: 20170613
  2. AERIUS [Suspect]
     Active Substance: DESLORATADINE
     Indication: PREMEDICATION
     Dosage: 10 MG, BID
     Route: 048
     Dates: start: 20170612, end: 20170616
  3. AERIUS [Suspect]
     Active Substance: DESLORATADINE
     Indication: URTICARIA
  4. AZANTAC [Suspect]
     Active Substance: RANITIDINE HYDROCHLORIDE
     Indication: PREMEDICATION
     Dosage: 50 MG, CYCLICAL
     Route: 042
     Dates: start: 20170613, end: 20170613
  5. HYDROXYZINE [Suspect]
     Active Substance: HYDROXYZINE HYDROCHLORIDE
     Indication: PREMEDICATION
     Dosage: 25 MG, CYCLICAL
     Dates: start: 20170613, end: 20170613
  6. AERIUS [Suspect]
     Active Substance: DESLORATADINE
     Indication: RHINITIS ALLERGIC
  7. OXALIPLATIN. [Suspect]
     Active Substance: OXALIPLATIN
     Indication: IMMUNE TOLERANCE INDUCTION
     Dosage: UNK
     Route: 042
     Dates: start: 20170613, end: 20170614

REACTIONS (1)
  - Pancreatitis acute [Recovered/Resolved]

NARRATIVE: CASE EVENT DATE: 20170616
